FAERS Safety Report 6140214-6 (Version None)
Quarter: 2009Q2

REPORT INFORMATION
  Report Type: 
  Country: None (occurrence: None)
  Receive Date: 20090401
  Receipt Date: 20090326
  Transmission Date: 20091009
  Serious: Yes (Hospitalization)
  Sender: FDA-Public Use
  Company Number: JP-EISAI MEDICAL RESEARCH-E2090-00697-SPO-JP

PATIENT
  Age: 76 Year
  Sex: Female

DRUGS (5)
  1. EXCEGRAN [Suspect]
     Indication: DRUG USE FOR UNKNOWN INDICATION
     Dosage: UNKNOWN
     Route: 048
  2. ASPIRIN [Concomitant]
  3. TAKEPRON [Concomitant]
  4. CPFX/CLDM/LSD [Concomitant]
  5. LINEZOLID [Concomitant]

REACTIONS (1)
  - TOXIC EPIDERMAL NECROLYSIS [None]
